FAERS Safety Report 12703425 (Version 3)
Quarter: 2016Q3

REPORT INFORMATION
  Report Type: Spontaneous
  Country: US (occurrence: US)
  Receive Date: 20160831
  Receipt Date: 20160930
  Transmission Date: 20161109
  Serious: No
  Sender: FDA-Public Use
  Company Number: US-PFIZER INC-2016407300

PATIENT
  Age: 50 Year
  Sex: Female
  Weight: 41 kg

DRUGS (4)
  1. ADVIL [Suspect]
     Active Substance: IBUPROFEN
     Indication: BACK DISORDER
  2. ADVIL [Suspect]
     Active Substance: IBUPROFEN
     Indication: BACK INJURY
  3. ADVIL [Suspect]
     Active Substance: IBUPROFEN
     Indication: CHEST INJURY
     Dosage: 400 MG, SINGLE
     Route: 048
     Dates: start: 20160825, end: 20160825
  4. ADVIL [Suspect]
     Active Substance: IBUPROFEN
     Indication: PAIN

REACTIONS (2)
  - Gastrointestinal disorder [Not Recovered/Not Resolved]
  - Drug ineffective for unapproved indication [Unknown]

NARRATIVE: CASE EVENT DATE: 201608
